FAERS Safety Report 8990067 (Version 1)
Quarter: 2012Q4

REPORT INFORMATION
  Report Type: 
  Country: AT (occurrence: AT)
  Receive Date: 20121228
  Receipt Date: 20121228
  Transmission Date: 20130627
  Serious: Yes (Other)
  Sender: FDA-Public Use
  Company Number: AT-ASTRAZENECA-2012SE90391

PATIENT
  Age: 16265 Day
  Sex: Female
  Weight: 86.5 kg

DRUGS (6)
  1. SEROQUEL XR [Suspect]
     Indication: ANTIDEPRESSANT DRUG LEVEL INCREASED
     Route: 048
     Dates: start: 20121024, end: 20121205
  2. SEROQUEL XR [Suspect]
     Indication: SUICIDAL IDEATION
     Route: 048
     Dates: start: 20121024, end: 20121205
  3. L-THYROXIN [Concomitant]
     Indication: HYPOTHYROIDISM
  4. EFECTIN ER [Concomitant]
     Indication: ANTIDEPRESSANT THERAPY
     Route: 048
     Dates: start: 20121024
  5. TRITTICO RET [Concomitant]
     Indication: ANTIDEPRESSANT THERAPY
     Route: 048
     Dates: start: 201206
  6. TEMESTA [Concomitant]
     Indication: ANTIDEPRESSANT THERAPY
     Route: 048
     Dates: start: 20121024

REACTIONS (2)
  - Pleural effusion [Recovered/Resolved]
  - Pericardial effusion [Recovered/Resolved]
